FAERS Safety Report 21724830 (Version 1)
Quarter: 2022Q4

REPORT INFORMATION
  Report Type: Spontaneous
  Country: US (occurrence: US)
  Receive Date: 20221214
  Receipt Date: 20221214
  Transmission Date: 20230113
  Serious: Yes (Hospitalization)
  Sender: FDA-Public Use
  Company Number: US-BIOVITRUM-2022US14779

PATIENT
  Sex: Female
  Weight: 5 kg

DRUGS (3)
  1. SYNAGIS [Suspect]
     Active Substance: PALIVIZUMAB
     Indication: Bronchopulmonary dysplasia
     Dates: start: 20221011
  2. SYNAGIS [Suspect]
     Active Substance: PALIVIZUMAB
     Indication: Gastrooesophageal reflux disease
  3. SYNAGIS [Suspect]
     Active Substance: PALIVIZUMAB
     Indication: Immunisation

REACTIONS (2)
  - Respiratory syncytial virus infection [Unknown]
  - Influenza [Unknown]
